FAERS Safety Report 21607776 (Version 1)
Quarter: 2022Q4

REPORT INFORMATION
  Report Type: Spontaneous
  Country: TN (occurrence: TN)
  Receive Date: 20221117
  Receipt Date: 20221117
  Transmission Date: 20230112
  Serious: Yes (Other)
  Sender: FDA-Public Use
  Company Number: TN-SUN PHARMACEUTICAL INDUSTRIES LTD-2022R1-363486

PATIENT
  Age: 27 Year
  Sex: Male

DRUGS (3)
  1. ACETAZOLAMIDE [Interacting]
     Active Substance: ACETAZOLAMIDE
     Indication: Osteo-meningeal breaches
     Dosage: UNK
     Route: 065
  2. CARBAMAZEPINE [Interacting]
     Active Substance: CARBAMAZEPINE
     Indication: Partial seizures
     Dosage: 200 MILLIGRAM, BID
     Route: 065
  3. CEFOTAXIME [Concomitant]
     Active Substance: CEFOTAXIME SODIUM
     Indication: Meningitis pneumococcal
     Dosage: 2 GRAM X 6/DAY
     Route: 065

REACTIONS (3)
  - Hepatitis acute [Recovering/Resolving]
  - Hepatocellular injury [Recovering/Resolving]
  - Drug interaction [Unknown]
